FAERS Safety Report 9120740 (Version 1)
Quarter: 2013Q1

REPORT INFORMATION
  Report Type: Report from Study
  Country: DE (occurrence: DE)
  Receive Date: 20130226
  Receipt Date: 20130226
  Transmission Date: 20140127
  Serious: Yes (Death, Hospitalization, Other)
  Sender: FDA-Public Use
  Company Number: DE-ROCHE-761489

PATIENT
  Age: 61 Year
  Sex: Female

DRUGS (25)
  1. RITUXIMAB [Suspect]
     Indication: RHEUMATOID ARTHRITIS
     Route: 065
     Dates: start: 20100106, end: 20100106
  2. METHOTREXATE [Suspect]
     Indication: RHEUMATOID ARTHRITIS
     Route: 048
  3. METHOTREXATE [Suspect]
     Route: 065
  4. HYDROXYCHLOROQUINE [Suspect]
     Indication: RHEUMATOID ARTHRITIS
     Route: 065
  5. FLUOCORTOLONE [Concomitant]
     Route: 065
  6. PROTON PUMP INHIBITORS [Concomitant]
     Route: 065
  7. PROTON PUMP INHIBITORS [Concomitant]
     Route: 065
  8. DICLOFENAC [Concomitant]
     Route: 065
  9. DICLOFENAC [Concomitant]
     Route: 065
  10. AMLODIPIN [Concomitant]
     Route: 065
  11. LORZAAR PLUS [Concomitant]
     Route: 065
  12. METOPROLOL [Concomitant]
     Route: 065
  13. DIGIMERCK [Concomitant]
  14. FOLSAN [Concomitant]
     Route: 065
  15. CALCIUM CARBONATE/CHOLECALCIFEROL [Concomitant]
     Route: 065
  16. PREDNISOLON [Concomitant]
     Indication: RHEUMATOID ARTHRITIS
     Route: 065
  17. GLUCOSTERIL [Concomitant]
     Route: 065
  18. PARACETAMOL [Concomitant]
     Route: 065
  19. ASS [Concomitant]
     Dosage: 1 DF
     Route: 065
  20. VALSARTAN [Concomitant]
     Route: 065
  21. VALSARTAN HCT [Concomitant]
     Dosage: 80/12.5 MG
     Route: 065
  22. DIGITOXIN [Concomitant]
     Route: 065
  23. FOLIC ACID [Concomitant]
     Route: 065
  24. CLOPIDOGREL [Concomitant]
     Route: 065
  25. FERROSANOL DUODENAL [Concomitant]
     Dosage: 1 DF
     Route: 065

REACTIONS (10)
  - Respiratory failure [Fatal]
  - Oral herpes [Recovered/Resolved]
  - Pneumonia [Fatal]
  - Weight decreased [Not Recovered/Not Resolved]
  - Oesophageal stenosis [Unknown]
  - Pneumonia fungal [Unknown]
  - Bronchitis bacterial [Unknown]
  - Uterine polyp [Recovered/Resolved]
  - Leukocytosis [Unknown]
  - C-reactive protein increased [Unknown]
